FAERS Safety Report 6445925-0 (Version None)
Quarter: 2009Q4

REPORT INFORMATION
  Report Type: 
  Country: None (occurrence: None)
  Receive Date: 20091119
  Receipt Date: 20090324
  Transmission Date: 20100525
  Serious: No
  Sender: FDA-Public Use
  Company Number: A0762338A

PATIENT
  Sex: Female

DRUGS (4)
  1. BUPROPION HYDROCHLORIDE [Suspect]
     Indication: DEPRESSION
     Dosage: 150MG TWICE PER DAY
     Route: 048
     Dates: start: 20080829, end: 20081101
  2. BUPROPION HYDROCHLORIDE [Suspect]
     Route: 048
  3. ALBUTEROL [Concomitant]
  4. ASMANEX TWISTHALER [Concomitant]

REACTIONS (30)
  - ALOPECIA [None]
  - BRUXISM [None]
  - CHROMATURIA [None]
  - CONSTIPATION [None]
  - DECREASED APPETITE [None]
  - DEHYDRATION [None]
  - DEPRESSION [None]
  - DYSGEUSIA [None]
  - DYSPNOEA [None]
  - EAR PAIN [None]
  - EATING DISORDER [None]
  - FATIGUE [None]
  - FOOD CRAVING [None]
  - GLOSSODYNIA [None]
  - HAIR TEXTURE ABNORMAL [None]
  - HEADACHE [None]
  - INFLUENZA [None]
  - INSOMNIA [None]
  - KYPHOSIS [None]
  - MEDICATION ERROR [None]
  - MUSCLE TIGHTNESS [None]
  - MYALGIA [None]
  - OROPHARYNGEAL PAIN [None]
  - PAIN [None]
  - PRODUCTIVE COUGH [None]
  - SNEEZING [None]
  - THIRST [None]
  - TINNITUS [None]
  - TONGUE BLISTERING [None]
  - VOMITING [None]
